FAERS Safety Report 25329950 (Version 1)
Quarter: 2025Q2

REPORT INFORMATION
  Report Type: Other
  Country: US (occurrence: US)
  Receive Date: 20250519
  Receipt Date: 20250519
  Transmission Date: 20250716
  Serious: Yes (Death)
  Sender: ANI
  Company Number: US-ANIPHARMA-022836

PATIENT
  Age: 1 Year

DRUGS (1)
  1. FLECAINIDE [Suspect]
     Active Substance: FLECAINIDE
     Indication: Supraventricular tachycardia
     Route: 048

REACTIONS (2)
  - Toxicity to various agents [Fatal]
  - Incorrect route of product administration [Fatal]
